FAERS Safety Report 5413332-5 (Version None)
Quarter: 2007Q3

REPORT INFORMATION
  Report Type: 
  Country: None (occurrence: None)
  Receive Date: 20070810
  Receipt Date: 20070725
  Transmission Date: 20080115
  Serious: Yes (Hospitalization)
  Sender: FDA-Public Use
  Company Number: 310001L07GBR

PATIENT
  Age: 41 Year
  Sex: Female

DRUGS (2)
  1. GONAL-F [Suspect]
     Indication: IN VITRO FERTILISATION
     Dosage: 300 IU, 1 IN 1 DAYS
  2. OVIDREL [Suspect]
     Indication: IN VITRO FERTILISATION
     Dosage: 2500 IU

REACTIONS (6)
  - ABORTION SPONTANEOUS [None]
  - C-REACTIVE PROTEIN INCREASED [None]
  - DRUG EXPOSURE DURING PREGNANCY [None]
  - HYDROTHORAX [None]
  - LEUKOCYTOSIS [None]
  - OVARIAN ENLARGEMENT [None]
